FAERS Safety Report 5005816-9 (Version None)
Quarter: 2006Q2

REPORT INFORMATION
  Report Type: 
  Country: None (occurrence: None)
  Receive Date: 20060516
  Receipt Date: 20060502
  Transmission Date: 20061013
  Serious: Yes (Hospitalization)
  Sender: FDA-Public Use
  Company Number: T200600181

PATIENT
  Age: 63 Year
  Sex: Female
  Weight: 99.8 kg

DRUGS (18)
  1. METHADOSE [Suspect]
     Indication: PAIN
     Dosage: 40 MG, TID, ORAL
     Route: 048
     Dates: start: 20050722
  2. CEP-25608() [Suspect]
     Indication: BREAKTHROUGH PAIN
     Dosage: 200 UG, PRN, BUCCAL
     Route: 002
     Dates: start: 20051212, end: 20060301
  3. CEP-25608() [Suspect]
     Indication: BREAKTHROUGH PAIN
     Dosage: 200 UG, PRN, BUCCAL
     Route: 002
     Dates: start: 20060301, end: 20060331
  4. AMITRIPTYLINE HCL [Suspect]
     Indication: INSOMNIA
     Dosage: 100 + + 75 + 10MG, QHS, ORAL
     Route: 048
     Dates: start: 20050301, end: 20060307
  5. AMITRIPTYLINE HCL [Suspect]
     Indication: INSOMNIA
     Dosage: 100 + + 75 + 10MG, QHS, ORAL
     Route: 048
     Dates: start: 20060309, end: 20060309
  6. AMITRIPTYLINE HCL [Suspect]
     Indication: INSOMNIA
     Dosage: 100 + + 75 + 10MG, QHS, ORAL
     Route: 048
     Dates: start: 20060310, end: 20060321
  7. LORTAB [Concomitant]
  8. ASPIRIN [Concomitant]
  9. CELEXA [Concomitant]
  10. GLYBURIDE [Concomitant]
  11. COLACE (DOCUSATE SODIUM) [Concomitant]
  12. LISINOPRIL [Concomitant]
  13. TEGRETOL [Concomitant]
  14. CLONAZEPAM [Concomitant]
  15. KLOR-CON [Concomitant]
  16. GLUCOPHAGE   /00032601/(METFORMIN)) [Concomitant]
  17. TRAVATAN [Concomitant]
  18. LASIX [Concomitant]

REACTIONS (8)
  - BLOOD POTASSIUM INCREASED [None]
  - BLOOD SODIUM DECREASED [None]
  - DRUG INTERACTION [None]
  - LETHARGY [None]
  - LISTLESS [None]
  - MENTAL STATUS CHANGES [None]
  - MIOSIS [None]
  - SOMNOLENCE [None]
